FAERS Safety Report 9901103 (Version 1)
Quarter: 2014Q1

REPORT INFORMATION
  Report Type: Spontaneous
  Country: US (occurrence: US)
  Receive Date: 20140217
  Receipt Date: 20140217
  Transmission Date: 20141002
  Serious: No
  Sender: FDA-Public Use
  Company Number: US-PFIZER INC-2014039969

PATIENT
  Age: 51 Year
  Sex: Female

DRUGS (8)
  1. VISTARIL [Suspect]
     Dosage: UNK
  2. THEOPHYLLINE [Suspect]
     Dosage: UNK
  3. CODEINE [Suspect]
     Dosage: UNK
  4. LEVAQUIN [Suspect]
     Dosage: UNK
  5. DEMEROL [Suspect]
     Dosage: UNK
  6. VERSED [Suspect]
     Dosage: UNK
  7. PHENERGAN [Suspect]
     Dosage: UNK
  8. IODINE [Suspect]
     Dosage: UNK

REACTIONS (1)
  - Drug hypersensitivity [Unknown]
